FAERS Safety Report 6341997-2 (Version None)
Quarter: 2009Q3

REPORT INFORMATION
  Report Type: 
  Country: None (occurrence: None)
  Receive Date: 20090904
  Receipt Date: 20090827
  Transmission Date: 20100115
  Serious: Yes (Other)
  Sender: FDA-Public Use
  Company Number: US-ABBOTT-09P-163-0593852-00

PATIENT
  Sex: Female
  Weight: 99.88 kg

DRUGS (16)
  1. HUMIRA [Suspect]
     Indication: PSORIATIC ARTHROPATHY
     Route: 058
     Dates: start: 20040101, end: 20040101
  2. HUMIRA [Suspect]
     Indication: PSORIASIS
     Route: 058
     Dates: start: 20090101, end: 20090101
  3. HUMALOG [Concomitant]
     Indication: DIABETES MELLITUS
     Dosage: 3 TIMES DAILY WITH MEALS
     Route: 058
  4. LANTUS [Concomitant]
     Indication: DIABETES MELLITUS
     Route: 058
  5. PROZAC [Concomitant]
     Indication: DEPRESSION
     Route: 048
  6. SYNTHROID [Concomitant]
     Indication: BASEDOW'S DISEASE
     Route: 048
  7. SYNTHROID [Concomitant]
     Indication: THYROIDECTOMY
  8. PRAVACHOL [Concomitant]
     Indication: BLOOD CHOLESTEROL INCREASED
  9. ZETIA [Concomitant]
     Indication: BLOOD PRESSURE
     Route: 048
  10. ZETIA [Concomitant]
     Indication: BLOOD CHOLESTEROL
  11. LISINOPRIL [Concomitant]
     Indication: HYPERTENSION
     Route: 048
  12. METHOTREXATE [Concomitant]
     Indication: PSORIATIC ARTHROPATHY
     Route: 048
  13. METHOTREXATE [Concomitant]
     Indication: PSORIASIS
  14. LORTAB [Concomitant]
     Indication: ARTHRALGIA
     Dosage: AS REQUIRED
     Route: 048
     Dates: start: 20090301
  15. LORTAB [Concomitant]
     Indication: STEVENS-JOHNSON SYNDROME
  16. FOLIC ACID [Concomitant]
     Indication: VITAMIN SUPPLEMENTATION
     Route: 048

REACTIONS (5)
  - HERPES ZOSTER [None]
  - PSORIASIS [None]
  - PSORIATIC ARTHROPATHY [None]
  - PYREXIA [None]
  - STEVENS-JOHNSON SYNDROME [None]
